FAERS Safety Report 22999414 (Version 2)
Quarter: 2024Q4

REPORT INFORMATION
  Report Type: Spontaneous
  Country: US (occurrence: US)
  Receive Date: 20230928
  Receipt Date: 20241016
  Transmission Date: 20250115
  Serious: No
  Sender: CELLTRION
  Company Number: US-CELLTRION INC.-2023US016686

PATIENT

DRUGS (1)
  1. INFLECTRA [Suspect]
     Active Substance: INFLIXIMAB-DYYB
     Indication: Crohn^s disease
     Dosage: 300 MILLIGRAM, EVERY 7 WEEKS
     Route: 042
     Dates: start: 20230817

REACTIONS (5)
  - Condition aggravated [Recovered/Resolved]
  - Therapy change [Unknown]
  - Abdominal pain [Recovered/Resolved]
  - Diarrhoea [Recovered/Resolved]
  - Intentional product use issue [Unknown]
